FAERS Safety Report 6385299-7 (Version None)
Quarter: 2009Q4

REPORT INFORMATION
  Report Type: 
  Country: None (occurrence: None)
  Receive Date: 20091002
  Receipt Date: 20080821
  Transmission Date: 20100525
  Serious: No
  Sender: FDA-Public Use
  Company Number: US-ASTRAZENECA-2008UW17146

PATIENT
  Age: 65 Year
  Sex: Female
  Weight: 63.5 kg

DRUGS (6)
  1. ARIMIDEX [Suspect]
     Indication: UTERINE CANCER
     Route: 048
     Dates: start: 20080722
  2. ARIMIDEX [Suspect]
     Indication: VAGINAL CANCER
     Route: 048
     Dates: start: 20080722
  3. ARIMIDEX [Suspect]
     Indication: RENAL CANCER
     Route: 048
     Dates: start: 20080722
  4. METOPROLOL [Concomitant]
  5. OXYCONTIN [Concomitant]
  6. GABAPENTIN [Concomitant]

REACTIONS (3)
  - ASTHENIA [None]
  - OEDEMA PERIPHERAL [None]
  - PAIN [None]
